FAERS Safety Report 15196718 (Version 1)
Quarter: 2018Q3

REPORT INFORMATION
  Report Type: Spontaneous
  Country: DK (occurrence: DK)
  Receive Date: 20180725
  Receipt Date: 20180725
  Transmission Date: 20181010
  Serious: Yes (Congenital Anomaly)
  Sender: FDA-Public Use
  Company Number: DK-BAYER-2018-135078

PATIENT

DRUGS (1)
  1. MICROGYN [Suspect]
     Active Substance: ETHINYL ESTRADIOL\LEVONORGESTREL
     Indication: ORAL CONTRACEPTION
     Dosage: 1 DF, UNK
     Route: 064
     Dates: start: 201612

REACTIONS (4)
  - Foetal exposure during pregnancy [Not Recovered/Not Resolved]
  - Congenital hand malformation [Not Recovered/Not Resolved]
  - Spine malformation [Not Recovered/Not Resolved]
  - Skull malformation [Not Recovered/Not Resolved]
